FAERS Safety Report 23275746 (Version 1)
Quarter: 2023Q4

REPORT INFORMATION
  Report Type: Spontaneous
  Country: US (occurrence: US)
  Receive Date: 20231208
  Receipt Date: 20231208
  Transmission Date: 20240110
  Serious: Yes (Other)
  Sender: FDA-Public Use
  Company Number: US-SANOFI-01863450

PATIENT
  Age: 75 Year
  Sex: Male

DRUGS (4)
  1. TOUJEO MAX [Suspect]
     Active Substance: INSULIN GLARGINE
     Indication: Diabetes mellitus
     Dosage: 16 IU, QD
  2. TOUJEO MAX [Suspect]
     Active Substance: INSULIN GLARGINE
     Dosage: 26 IU, QD
  3. TOUJEO MAX [Suspect]
     Active Substance: INSULIN GLARGINE
     Dosage: 16 IU, QD
  4. MOUNJARO [Concomitant]
     Active Substance: TIRZEPATIDE
     Indication: Diabetes mellitus
     Dosage: 2.5 MG / .5L , 1X

REACTIONS (2)
  - Diabetes mellitus inadequate control [Unknown]
  - Inappropriate schedule of product administration [Unknown]
